FAERS Safety Report 12439084 (Version 1)
Quarter: 2016Q2

REPORT INFORMATION
  Report Type: Spontaneous
  Country: JP (occurrence: JP)
  Receive Date: 20160606
  Receipt Date: 20160606
  Transmission Date: 20160815
  Serious: Yes (Other)
  Sender: FDA-Public Use
  Company Number: JP-009507513-1601JPN005445

PATIENT

DRUGS (2)
  1. TEMODAL [Suspect]
     Active Substance: TEMOZOLOMIDE
     Indication: NEUROBLASTOMA
     Dosage: 100 MG/M2, QD, FOR 5 DAYS EVERY 4 WEEKS
     Route: 065
  2. IRINOTECAN HYDROCHLORIDE. [Suspect]
     Active Substance: IRINOTECAN HYDROCHLORIDE
     Indication: NEUROBLASTOMA
     Dosage: 20 MG/M2, QD, 5 DAYS A WEEK FOR 2 WEEKS EVERY 4 WEEKS
     Route: 041

REACTIONS (2)
  - Gastrointestinal toxicity [Unknown]
  - Bone marrow failure [Unknown]
